FAERS Safety Report 22061664 (Version 2)
Quarter: 2023Q2

REPORT INFORMATION
  Report Type: Report from Study
  Country: JP (occurrence: JP)
  Receive Date: 20230304
  Receipt Date: 20230612
  Transmission Date: 20230721
  Serious: Yes (Death)
  Sender: FDA-Public Use
  Company Number: JP-TAKEDA-2022TJP047007

PATIENT
  Age: 70 Year
  Sex: Male
  Weight: 73 kg

DRUGS (7)
  1. LEUPROLIDE ACETATE [Suspect]
     Active Substance: LEUPROLIDE ACETATE
     Indication: Bulbospinal muscular atrophy congenital
     Dosage: 11.25 MILLIGRAM, Q3MONTHS
     Route: 058
     Dates: start: 20180201, end: 20210312
  2. VONOPRAZAN FUMARATE [Concomitant]
     Active Substance: VONOPRAZAN FUMARATE
     Indication: Product used for unknown indication
     Dosage: 10 MILLIGRAM
     Route: 065
     Dates: start: 20200403, end: 20210405
  3. SILODOSIN [Concomitant]
     Active Substance: SILODOSIN
     Indication: Product used for unknown indication
     Dosage: 8 MILLIGRAM
     Route: 065
     Dates: end: 20210405
  4. TICLOPIDINE HYDROCHLORIDE [Concomitant]
     Active Substance: TICLOPIDINE HYDROCHLORIDE
     Indication: Cerebral infarction
     Dosage: 100 MILLIGRAM
     Route: 065
     Dates: end: 20210405
  5. MICARDIS [Concomitant]
     Active Substance: TELMISARTAN
     Indication: Product used for unknown indication
     Dosage: 40 MILLIGRAM
     Route: 065
     Dates: end: 20210405
  6. TENORMIN [Concomitant]
     Active Substance: ATENOLOL
     Indication: Product used for unknown indication
     Dosage: 50 MILLIGRAM
     Route: 065
     Dates: end: 20210405
  7. AMLODIPINE [Concomitant]
     Active Substance: AMLODIPINE BESYLATE
     Indication: Product used for unknown indication
     Dosage: 5 MILLIGRAM
     Route: 065
     Dates: end: 20210405

REACTIONS (5)
  - Bulbospinal muscular atrophy congenital [Fatal]
  - Blood glucose increased [Recovering/Resolving]
  - Aspartate aminotransferase increased [Recovered/Resolved]
  - Alanine aminotransferase increased [Recovered/Resolved]
  - Blood bilirubin increased [Recovered/Resolved]

NARRATIVE: CASE EVENT DATE: 20190712
